FAERS Safety Report 4265648-6 (Version None)
Quarter: 2004Q1

REPORT INFORMATION
  Report Type: 
  Country: None (occurrence: None)
  Receive Date: 20040107
  Receipt Date: 20031016
  Transmission Date: 20041129
  Serious: Yes (Death, Hospitalization, Other)
  Sender: FDA-Public Use
  Company Number: 200320306GDDC

PATIENT
  Age: 87 Year
  Sex: Male

DRUGS (4)
  1. DOCETAXEL [Suspect]
     Indication: SQUAMOUS CELL CARCINOMA
     Route: 042
     Dates: start: 20000601, end: 20000723
  2. RADIATION THERAPY [Suspect]
     Indication: SQUAMOUS CELL CARCINOMA
     Dosage: DOSE: 3 GY
     Dates: start: 20000605, end: 20000801
  3. TEGAFUR W/URACIL [Concomitant]
     Indication: SQUAMOUS CELL CARCINOMA
     Route: 048
     Dates: start: 20000525, end: 20001020
  4. PEPLOMYCIN SULFATE [Concomitant]
     Indication: SQUAMOUS CELL CARCINOMA
     Route: 042
     Dates: start: 20000525, end: 20000723

REACTIONS (6)
  - BONE MARROW DEPRESSION [None]
  - METASTASES TO ABDOMINAL CAVITY [None]
  - METASTASES TO LUNG [None]
  - MUCOSAL INFLAMMATION [None]
  - PNEUMONIA [None]
  - RESPIRATORY FAILURE [None]
